FAERS Safety Report 18816750 (Version 1)
Quarter: 2021Q1

REPORT INFORMATION
  Report Type: Spontaneous
  Country: US (occurrence: US)
  Receive Date: 20210129
  Receipt Date: 20210129
  Transmission Date: 20210419
  Serious: Yes (Other)
  Sender: FDA-Public Use
  Company Number: None

PATIENT
  Age: 55 Year
  Sex: Female

DRUGS (2)
  1. SANDOSTATIN LAR DEPOT [Suspect]
     Active Substance: OCTREOTIDE ACETATE
     Indication: ACROMEGALY
     Dosage: ?          OTHER FREQUENCY:EVERY28DAYS ;?
     Route: 058
     Dates: start: 20191021
  2. SANDOSTATIN LAR DEPOT [Suspect]
     Active Substance: OCTREOTIDE ACETATE
     Indication: SOTOS^ SYNDROME
     Dosage: ?          OTHER FREQUENCY:EVERY28DAYS ;?
     Route: 058
     Dates: start: 20191021

REACTIONS (2)
  - Anaphylactic reaction [None]
  - COVID-19 immunisation [None]

NARRATIVE: CASE EVENT DATE: 20201231
